FAERS Safety Report 7167307-9 (Version None)
Quarter: 2010Q4

REPORT INFORMATION
  Report Type: 
  Country: None (occurrence: None)
  Receive Date: 20101216
  Receipt Date: 20101203
  Transmission Date: 20110411
  Serious: Yes (Other)
  Sender: FDA-Public Use
  Company Number: JP-ELI_LILLY_AND_COMPANY-JP201010006518

PATIENT
  Age: 13 Year
  Sex: Male
  Weight: 40 kg

DRUGS (1)
  1. STRATTERA [Suspect]
     Indication: ATTENTION DEFICIT/HYPERACTIVITY DISORDER
     Dosage: 10 MG, 2/D
     Route: 048
     Dates: start: 20101025, end: 20101027

REACTIONS (9)
  - ALTERED STATE OF CONSCIOUSNESS [None]
  - BINOCULAR EYE MOVEMENT DISORDER [None]
  - DIZZINESS [None]
  - EYE PAIN [None]
  - HEADACHE [None]
  - HYPOAESTHESIA [None]
  - METABOLIC ACIDOSIS [None]
  - MUSCULAR WEAKNESS [None]
  - SOMNOLENCE [None]
